FAERS Safety Report 5200849-1 (Version None)
Quarter: 2007Q1

REPORT INFORMATION
  Report Type: 
  Country: None (occurrence: None)
  Receive Date: 20070108
  Receipt Date: 20061227
  Transmission Date: 20070707
  Serious: Yes (Hospitalization)
  Sender: FDA-Public Use
  Company Number: US-JNJFOC-20061206883

PATIENT
  Sex: Female
  Weight: 105.24 kg

DRUGS (9)
  1. DURAGESIC-100 [Suspect]
     Indication: INTERVERTEBRAL DISC PROTRUSION
     Route: 062
  2. DURAGESIC-100 [Suspect]
     Indication: BACK PAIN
     Route: 062
  3. PLAVIX [Concomitant]
     Route: 065
  4. COZAAR [Concomitant]
     Route: 065
  5. LIPITOR [Concomitant]
     Route: 065
  6. HYDROCHLOROTHIAZIDE [Concomitant]
     Route: 065
  7. LABETALOL HCL [Concomitant]
     Route: 065
  8. AVANDIA [Concomitant]
     Route: 065
  9. XANAX [Concomitant]
     Route: 065

REACTIONS (3)
  - BACK PAIN [None]
  - CEREBROVASCULAR ACCIDENT [None]
  - HYPERTENSION [None]
